FAERS Safety Report 23064734 (Version 1)
Quarter: 2023Q4

REPORT INFORMATION
  Report Type: Spontaneous
  Country: US (occurrence: None)
  Receive Date: 20231013
  Receipt Date: 20231013
  Transmission Date: 20240110
  Serious: Yes (Death, Hospitalization)
  Sender: FDA-Public Use
  Company Number: None

PATIENT
  Age: 71 Year
  Sex: Male
  Weight: 90 kg

DRUGS (1)
  1. ENOXAPARIN [Suspect]
     Active Substance: ENOXAPARIN
     Dosage: FREQUENCY : TWICE A DAY;?
     Route: 058
     Dates: start: 20230115, end: 20230126

REACTIONS (7)
  - Pulseless electrical activity [None]
  - Multiple organ dysfunction syndrome [None]
  - Cardiac arrest [None]
  - Retroperitoneal haematoma [None]
  - Haematoma muscle [None]
  - Septic shock [None]
  - Shock haemorrhagic [None]

NARRATIVE: CASE EVENT DATE: 20230126
